FAERS Safety Report 6781639-5 (Version None)
Quarter: 2010Q2

REPORT INFORMATION
  Report Type: 
  Country: None (occurrence: None)
  Receive Date: 20100621
  Receipt Date: 20100610
  Transmission Date: 20101027
  Serious: Yes (Hospitalization)
  Sender: FDA-Public Use
  Company Number: FR-BAYER-201028817GPV

PATIENT
  Age: 85 Year
  Sex: Female

DRUGS (6)
  1. GLUCOR [Suspect]
     Indication: DIABETES MELLITUS
     Dosage: TOTAL DAILY DOSE: 300 MG  UNIT DOSE: 100 MG
     Route: 048
     Dates: start: 20090801, end: 20100423
  2. ZYLORIC [Suspect]
     Indication: GOUT
     Route: 048
     Dates: start: 20090801, end: 20100415
  3. OLMETEC [Suspect]
     Indication: HYPERTENSION
     Route: 048
     Dates: start: 20090801, end: 20100423
  4. CELIPROLOL [Suspect]
     Indication: HYPERTENSION
     Route: 048
     Dates: start: 20090801, end: 20100423
  5. XALATAN [Suspect]
     Indication: GLAUCOMA
     Route: 047
     Dates: start: 20090201, end: 20100424
  6. LIPOSIC [Suspect]
     Indication: GLAUCOMA
     Route: 047
     Dates: start: 20090201, end: 20100424

REACTIONS (1)
  - STEVENS-JOHNSON SYNDROME [None]
